FAERS Safety Report 5002138-7 (Version None)
Quarter: 2006Q2

REPORT INFORMATION
  Report Type: 
  Country: None (occurrence: None)
  Receive Date: 20060515
  Receipt Date: 20060109
  Transmission Date: 20061013
  Serious: Yes (Death, Other)
  Sender: FDA-Public Use
  Company Number: US-MERCK-0601USA00964

PATIENT
  Age: 56 Year
  Sex: Male
  Weight: 70 kg

DRUGS (4)
  1. VIOXX [Suspect]
     Indication: BACK PAIN
     Route: 048
     Dates: start: 20010101, end: 20040121
  2. VIOXX [Suspect]
     Indication: INTERVERTEBRAL DISC DEGENERATION
     Route: 048
     Dates: start: 20010101, end: 20040121
  3. TYLENOL (CAPLET) [Concomitant]
     Route: 065
  4. NAPROXEN [Concomitant]
     Route: 065

REACTIONS (6)
  - CARDIAC ARREST [None]
  - GASTROOESOPHAGEAL REFLUX DISEASE [None]
  - HEPATITIS C [None]
  - MYOCARDIAL INFARCTION [None]
  - MYOCARDIAL ISCHAEMIA [None]
  - POLYTRAUMATISM [None]
